FAERS Safety Report 13698892 (Version 1)
Quarter: 2017Q2

REPORT INFORMATION
  Report Type: Spontaneous
  Country: IT (occurrence: IT)
  Receive Date: 20170628
  Receipt Date: 20170628
  Transmission Date: 20170830
  Serious: Yes (Other)
  Sender: FDA-Public Use
  Company Number: IT-ALLERGAN-CIP03002105

PATIENT
  Age: 23 Year
  Sex: Female

DRUGS (1)
  1. ASACOL [Suspect]
     Active Substance: MESALAMINE
     Indication: COLITIS ULCERATIVE
     Dosage: 400 MG THREE TIMES DAILY
     Route: 048
     Dates: start: 1996, end: 199912

REACTIONS (1)
  - Idiopathic intracranial hypertension [Recovered/Resolved with Sequelae]

NARRATIVE: CASE EVENT DATE: 199911
